FAERS Safety Report 20776305 (Version 5)
Quarter: 2024Q4

REPORT INFORMATION
  Report Type: Spontaneous
  Country: US (occurrence: US)
  Receive Date: 20220502
  Receipt Date: 20241124
  Transmission Date: 20250115
  Serious: No
  Sender: SANOFI AVENTIS
  Company Number: US-SA-SAC00000000104330

PATIENT
  Age: 55 Year
  Sex: Male
  Weight: 36.287 kg

DRUGS (2)
  1. ELOCTATE [Suspect]
     Active Substance: EFMOROCTOCOG ALFA
     Dosage: 4000 U, PRN
     Route: 042
  2. ELOCTATE [Suspect]
     Active Substance: EFMOROCTOCOG ALFA
     Dosage: 4000 U, PRN
     Route: 042

REACTIONS (6)
  - Fall [Recovered/Resolved]
  - Contusion [Recovered/Resolved]
  - Bone contusion [Recovered/Resolved]
  - Injury [Unknown]
  - Haemorrhage [Unknown]
  - Mole excision [Unknown]

NARRATIVE: CASE EVENT DATE: 20220401
